FAERS Safety Report 9892783 (Version 1)
Quarter: 2014Q1

REPORT INFORMATION
  Report Type: Spontaneous
  Country: MX (occurrence: MX)
  Receive Date: 20140212
  Receipt Date: 20140212
  Transmission Date: 20141002
  Serious: Yes (Hospitalization)
  Sender: FDA-Public Use
  Company Number: MX-BAXTER-2014BAX006610

PATIENT
  Age: 56 Year
  Sex: Male

DRUGS (2)
  1. DIANEAL SOLUCION PARA DIALISIS PERITONEAL CON DEXTROSA AL 1.5% [Suspect]
     Indication: PERITONEAL DIALYSIS
     Route: 033
  2. EXTRANEAL [Suspect]
     Indication: PERITONEAL DIALYSIS
     Route: 033

REACTIONS (1)
  - Food poisoning [Recovered/Resolved]
